FAERS Safety Report 5729058-4 (Version None)
Quarter: 2008Q2

REPORT INFORMATION
  Report Type: 
  Country: None (occurrence: None)
  Receive Date: 20080505
  Receipt Date: 20080505
  Transmission Date: 20081010
  Serious: No
  Sender: FDA-Public Use
  Company Number: None

PATIENT
  Age: 35 Year
  Sex: Male
  Weight: 70.3075 kg

DRUGS (1)
  1. SOLU-MEDROL [Suspect]
     Indication: MULTIPLE SCLEROSIS
     Dosage: 1000G IV Q 3 MO
     Route: 042
     Dates: start: 20051107, end: 20080501

REACTIONS (4)
  - ERYTHEMA [None]
  - INFUSION SITE REACTION [None]
  - SNEEZING [None]
  - VOMITING [None]
